FAERS Safety Report 10801139 (Version 2)
Quarter: 2015Q1

REPORT INFORMATION
  Report Type: Spontaneous
  Country: US (occurrence: US)
  Receive Date: 20150216
  Receipt Date: 20150216
  Transmission Date: 20150721
  Serious: No
  Sender: FDA-Public Use
  Company Number: US-ALLERGAN-1422899US

PATIENT
  Sex: Female

DRUGS (2)
  1. LEVOTHYROXINE [Concomitant]
     Active Substance: LEVOTHYROXINE
     Indication: BASEDOW^S DISEASE
     Dosage: 100 MG, QD
     Route: 048
     Dates: start: 1980
  2. RESTASIS [Suspect]
     Active Substance: CYCLOSPORINE
     Indication: DRY EYE
     Dosage: 2 GTT, Q12H
     Route: 047
     Dates: start: 201409

REACTIONS (1)
  - Drug ineffective [Unknown]
